FAERS Safety Report 7441233-X (Version None)
Quarter: 2011Q2

REPORT INFORMATION
  Report Type: 
  Country: None (occurrence: None)
  Receive Date: 20110428
  Receipt Date: 20110404
  Transmission Date: 20111010
  Serious: No
  Sender: FDA-Public Use
  Company Number: US-BIOGENIDEC-2011BI014039

PATIENT
  Age: 34 Year
  Sex: Male

DRUGS (3)
  1. AVONEX [Concomitant]
     Indication: MULTIPLE SCLEROSIS
     Route: 030
     Dates: start: 20080801
  2. TYSABRI [Suspect]
     Indication: MULTIPLE SCLEROSIS
     Route: 042
     Dates: start: 20080424
  3. AVONEX [Concomitant]
     Route: 030
     Dates: start: 20060510, end: 20080323

REACTIONS (7)
  - MULTIPLE SCLEROSIS RELAPSE [None]
  - DEPRESSION [None]
  - BLADDER DISORDER [None]
  - INJURY [None]
  - GASTROINTESTINAL DISORDER [None]
  - NASOPHARYNGITIS [None]
  - MUSCULOSKELETAL DISORDER [None]
